FAERS Safety Report 7426782-2 (Version None)
Quarter: 2011Q2

REPORT INFORMATION
  Report Type: 
  Country: None (occurrence: None)
  Receive Date: 20110420
  Receipt Date: 20110414
  Transmission Date: 20111010
  Serious: Yes (Other)
  Sender: FDA-Public Use
  Company Number: DE-MERCK-1104DEU00061

PATIENT
  Age: 76 Year
  Sex: Male

DRUGS (2)
  1. PROSCAR [Suspect]
     Indication: BENIGN PROSTATIC HYPERPLASIA
     Route: 048
     Dates: end: 20110201
  2. METFORMIN [Concomitant]
     Route: 048

REACTIONS (2)
  - DRUG EFFECT DECREASED [None]
  - ALOPECIA [None]
